FAERS Safety Report 7153111-4 (Version None)
Quarter: 2010Q4

REPORT INFORMATION
  Report Type: 
  Country: None (occurrence: None)
  Receive Date: 20101213
  Receipt Date: 20101130
  Transmission Date: 20110411
  Serious: Yes (Disabling)
  Sender: FDA-Public Use
  Company Number: PHHY2010SE83393

PATIENT
  Sex: Male

DRUGS (10)
  1. STALEVO 100 [Suspect]
     Indication: PARKINSON'S DISEASE
     Dosage: SIX TABLETS DAILY
     Route: 048
     Dates: start: 20040101
  2. LEVOTHYROXINE SODIUM [Concomitant]
  3. BETOLVIDON [Concomitant]
  4. TRIOBE [Concomitant]
     Dosage: UNK
  5. EFFORTIL [Concomitant]
  6. CALCIUM [Concomitant]
  7. PREDNISOLONE [Concomitant]
  8. MADOPARK QUICK MITE [Concomitant]
  9. EXELON [Concomitant]
  10. MEMANTINE HCL [Concomitant]

REACTIONS (5)
  - DRUG INEFFECTIVE [None]
  - HAEMOGLOBIN DECREASED [None]
  - INFECTION [None]
  - MALABSORPTION [None]
  - ON AND OFF PHENOMENON [None]
